FAERS Safety Report 5654814-0 (Version None)
Quarter: 2008Q1

REPORT INFORMATION
  Report Type: 
  Country: None (occurrence: None)
  Receive Date: 20080307
  Receipt Date: 20070725
  Transmission Date: 20080703
  Serious: No
  Sender: FDA-Public Use
  Company Number: A0666316A

PATIENT

DRUGS (2)
  1. REQUIP [Suspect]
     Indication: RESTLESS LEGS SYNDROME
     Dosage: .25MG PER DAY
     Route: 048
     Dates: start: 20070701
  2. UNKNOWN [Concomitant]

REACTIONS (3)
  - FEELING JITTERY [None]
  - PARAESTHESIA [None]
  - TREMOR [None]
